FAERS Safety Report 19699361 (Version 1)
Quarter: 2021Q3

REPORT INFORMATION
  Report Type: Spontaneous
  Country: FR (occurrence: FR)
  Receive Date: 20210813
  Receipt Date: 20210813
  Transmission Date: 20211014
  Serious: No
  Sender: FDA-Public Use
  Company Number: FR-GW PHARMA-202108FRGW03866

PATIENT

DRUGS (1)
  1. EPIDYOLEX [Suspect]
     Active Substance: CANNABIDIOL
     Indication: LENNOX-GASTAUT SYNDROME
     Dosage: UNK
     Route: 048
     Dates: start: 202011

REACTIONS (3)
  - Liquid product physical issue [Unknown]
  - Seizure [Unknown]
  - Therapeutic product effect decreased [Unknown]
